FAERS Safety Report 6006694-1 (Version None)
Quarter: 2008Q4

REPORT INFORMATION
  Report Type: 
  Country: None (occurrence: None)
  Receive Date: 20081217
  Receipt Date: 20081204
  Transmission Date: 20090506
  Serious: Yes (Death, Hospitalization, Disabling)
  Sender: FDA-Public Use
  Company Number: BE-AMGEN-UK320888

PATIENT
  Sex: Male

DRUGS (2)
  1. PANITUMUMAB [Suspect]
     Indication: SQUAMOUS CELL CARCINOMA
     Route: 042
     Dates: start: 20081013, end: 20081103
  2. UNSPECIFIED RADIATION THERAPY [Suspect]
     Dates: end: 20081125

REACTIONS (4)
  - CONFUSIONAL STATE [None]
  - DERMATITIS [None]
  - STOMATITIS [None]
  - SUDDEN DEATH [None]
